FAERS Safety Report 7599321-3 (Version None)
Quarter: 2011Q3

REPORT INFORMATION
  Report Type: 
  Country: None (occurrence: None)
  Receive Date: 20110711
  Receipt Date: 20110630
  Transmission Date: 20111222
  Serious: Yes (Life-Threatening, Hospitalization, Other)
  Sender: FDA-Public Use
  Company Number: JP-BAYER-2011-004637

PATIENT
  Age: 56 Year
  Sex: Male

DRUGS (5)
  1. FLUOROURACIL [Concomitant]
     Dosage: UNK
     Route: 042
     Dates: start: 20100510
  2. ANTIHYPERTENSIVES [Concomitant]
     Dosage: UNK
     Route: 065
     Dates: start: 20110216
  3. NEXAVAR [Suspect]
     Dosage: UNK
     Dates: start: 20110408
  4. CISPLATIN [Concomitant]
     Dosage: UNK
     Route: 042
     Dates: start: 20100510
  5. NEXAVAR [Suspect]
     Indication: HEPATIC NEOPLASM MALIGNANT
     Dosage: 400 MG, QD
     Route: 048
     Dates: start: 20101206

REACTIONS (4)
  - HAEMOBILIA [None]
  - JAUNDICE CHOLESTATIC [None]
  - ANAEMIA [None]
  - PLATELET COUNT DECREASED [None]
